FAERS Safety Report 9695514 (Version 1)
Quarter: 2013Q4

REPORT INFORMATION
  Report Type: Spontaneous
  Country: US (occurrence: US)
  Receive Date: 20131119
  Receipt Date: 20131119
  Transmission Date: 20140711
  Serious: No
  Sender: FDA-Public Use
  Company Number: US-PFIZER INC-2013325757

PATIENT
  Sex: Male

DRUGS (4)
  1. ADVIL [Suspect]
     Indication: PAIN
     Dosage: UNK, AS NEEDED
     Route: 048
     Dates: end: 201311
  2. ADVIL [Suspect]
     Dosage: UNK, AS NEEDED
     Route: 048
     Dates: start: 20131112
  3. ALEVE [Suspect]
     Indication: PAIN
     Dosage: UNK
     Dates: start: 201311
  4. MELOXICAM [Concomitant]
     Indication: RHEUMATOID ARTHRITIS
     Dosage: UNK

REACTIONS (3)
  - Rash [Recovered/Resolved]
  - Skin exfoliation [Recovering/Resolving]
  - Pruritus [Recovering/Resolving]
